FAERS Safety Report 6541313-7 (Version None)
Quarter: 2010Q1

REPORT INFORMATION
  Report Type: 
  Country: None (occurrence: None)
  Receive Date: 20100118
  Receipt Date: 20100105
  Transmission Date: 20100710
  Serious: Yes (Other)
  Sender: FDA-Public Use
  Company Number: FR-ELI_LILLY_AND_COMPANY-FR201001000450

PATIENT
  Sex: Female

DRUGS (3)
  1. OLANZAPINE [Suspect]
     Dosage: 10 MG, DAILY (1/D)
     Route: 064
  2. PRAZEPAM [Concomitant]
     Dosage: 10 MG, 2/D
     Route: 064
  3. DEPAMIDE [Concomitant]
     Dosage: 300 MG, 2/D
     Route: 064

REACTIONS (1)
  - MUSCLE CONTRACTURE [None]
